FAERS Safety Report 21058920 (Version 1)
Quarter: 2022Q3

REPORT INFORMATION
  Report Type: Spontaneous
  Country: US (occurrence: US)
  Receive Date: 20220708
  Receipt Date: 20220708
  Transmission Date: 20221026
  Serious: No
  Sender: FDA-Public Use
  Company Number: US-GLAXOSMITHKLINE-USCH2022023549

PATIENT
  Age: 63 Year
  Sex: Female

DRUGS (2)
  1. LAMISIL AT CONTINUOUS SPRAY [Suspect]
     Active Substance: TERBINAFINE HYDROCHLORIDE
     Indication: Fungal foot infection
     Dosage: UNK
     Dates: start: 20220623, end: 20220705
  2. LAMISIL AT CONTINUOUS SPRAY [Suspect]
     Active Substance: TERBINAFINE HYDROCHLORIDE
     Indication: Tinea pedis

REACTIONS (2)
  - Drug ineffective [Unknown]
  - Product use issue [Unknown]

NARRATIVE: CASE EVENT DATE: 20220623
